FAERS Safety Report 5762102-7 (Version None)
Quarter: 2008Q2

REPORT INFORMATION
  Report Type: 
  Country: None (occurrence: None)
  Receive Date: 20080604
  Receipt Date: 20080520
  Transmission Date: 20081010
  Serious: Yes (Other)
  Sender: FDA-Public Use
  Company Number: S08-SAF-01777-01

PATIENT
  Age: 16 Year
  Sex: Female
  Weight: 70 kg

DRUGS (11)
  1. ESCITALOPRAM [Suspect]
     Indication: MAJOR DEPRESSION
     Dosage: 10 MG QD PO
     Route: 048
     Dates: start: 20070627, end: 20080430
  2. LUVOX [Concomitant]
  3. DORMICUM (NITRAZEPAM) [Concomitant]
  4. PROPAFOL [Concomitant]
  5. SUFENTANIL CITRATE [Concomitant]
  6. ESMARON (TRICHLORMETHIAZIDE) [Concomitant]
  7. TORADOL [Concomitant]
  8. DEXAMETHASONE [Concomitant]
  9. AUGMENTIN '125' [Concomitant]
  10. NEOSTIGMINE [Concomitant]
  11. ATROPINE [Concomitant]

REACTIONS (6)
  - AMNESIA [None]
  - CONFUSIONAL STATE [None]
  - DISORIENTATION [None]
  - PANIC ATTACK [None]
  - POST PROCEDURAL COMPLICATION [None]
  - TOOTH IMPACTED [None]
